FAERS Safety Report 10762360 (Version 1)
Quarter: 2015Q1

REPORT INFORMATION
  Report Type: Spontaneous
  Country: ID (occurrence: ID)
  Receive Date: 20150204
  Receipt Date: 20150204
  Transmission Date: 20150721
  Serious: Yes (Death, Hospitalization, Other)
  Sender: FDA-Public Use
  Company Number: ID-SHIONOGI, INC-2010000489

PATIENT
  Age: 37 Year
  Sex: Female
  Weight: 48 kg

DRUGS (8)
  1. RANITIDINE [Concomitant]
     Active Substance: RANITIDINE\RANITIDINE HYDROCHLORIDE
     Dosage: DOSAGE FORM: UNSPECIFIED
     Route: 042
  2. DORIBAX [Suspect]
     Active Substance: DORIPENEM
     Indication: PNEUMONIA
     Route: 041
     Dates: start: 20100624, end: 20100701
  3. CAPTOPRIL. [Concomitant]
     Active Substance: CAPTOPRIL
  4. WARFARIN [Suspect]
     Active Substance: WARFARIN
     Indication: PRODUCT USED FOR UNKNOWN INDICATION
  5. AMBROXOL [Concomitant]
     Active Substance: AMBROXOL
  6. DORIPENEM [Suspect]
     Active Substance: DORIPENEM
  7. DORIPENEM [Suspect]
     Active Substance: DORIPENEM
  8. PARACETAMOL [Concomitant]
     Active Substance: ACETAMINOPHEN
     Dosage: DOSAGE FORM: UNSPECIFIED
     Route: 065

REACTIONS (6)
  - Haemorrhage intracranial [Fatal]
  - Headache [Fatal]
  - Cardiac arrest [None]
  - Seizure [Fatal]
  - Vomiting [Fatal]
  - No therapeutic response [None]

NARRATIVE: CASE EVENT DATE: 20100701
